FAERS Safety Report 23934802 (Version 1)
Quarter: 2024Q2

REPORT INFORMATION
  Report Type: Report from Study
  Country: CA (occurrence: None)
  Receive Date: 20240604
  Receipt Date: 20240604
  Transmission Date: 20240716
  Serious: Yes (Other)
  Sender: FDA-Public Use
  Company Number: 2024A079360

PATIENT
  Sex: Male

DRUGS (4)
  1. FASENRA [Suspect]
     Active Substance: BENRALIZUMAB
     Indication: Asthma
     Route: 058
     Dates: start: 20180920
  2. ASMANEX [Concomitant]
     Active Substance: MOMETASONE FUROATE
     Dosage: 400MCG, 1INH OD
     Dates: start: 2015
  3. OLODATEROL HYDROCHLORIDE\TIOTROPIUM BROMIDE MONOHYDRATE [Concomitant]
     Active Substance: OLODATEROL HYDROCHLORIDE\TIOTROPIUM BROMIDE MONOHYDRATE
     Dosage: 2.5/2.5MCG, 2INH OD
     Dates: start: 2016
  4. ALBUTEROL [Concomitant]
     Active Substance: ALBUTEROL
     Dosage: PRN
     Dates: start: 2014

REACTIONS (3)
  - Hypertension [Not Recovered/Not Resolved]
  - Oxygen saturation decreased [Recovering/Resolving]
  - Drug ineffective [Unknown]
